FAERS Safety Report 12073771 (Version 2)
Quarter: 2016Q3

REPORT INFORMATION
  Report Type: Spontaneous
  Country: JP (occurrence: JP)
  Receive Date: 20160212
  Receipt Date: 20160812
  Transmission Date: 20161109
  Serious: Yes (Hospitalization)
  Sender: FDA-Public Use
  Company Number: JP-IMPAX LABORATORIES, INC-2016-IPXL-00160

PATIENT
  Age: 70 Year
  Sex: Female

DRUGS (13)
  1. CARBIDOPA-LEVODOPA ER [Suspect]
     Active Substance: CARBIDOPA\LEVODOPA
     Indication: PARKINSON^S DISEASE
     Dosage: 600 MG, DAILY
     Route: 065
  2. PRAMIPEXOLE. [Suspect]
     Active Substance: PRAMIPEXOLE
     Dosage: GRADUALLY REDUCED IN A WEEK
     Route: 065
  3. ENTACAPONE. [Suspect]
     Active Substance: ENTACAPONE
     Dosage: 400 MG, DAILY
     Route: 065
  4. CARBIDOPA-LEVODOPA ER [Suspect]
     Active Substance: CARBIDOPA\LEVODOPA
     Dosage: 600 MG/DAY
     Route: 048
  5. CARBIDOPA-LEVODOPA ER [Suspect]
     Active Substance: CARBIDOPA\LEVODOPA
     Dosage: 600 MG/DAY
     Route: 048
  6. PRAMIPEXOLE. [Suspect]
     Active Substance: PRAMIPEXOLE
     Indication: PARKINSON^S DISEASE
     Dosage: 3 MG, DAILY
     Route: 065
  7. CARBIDOPA-LEVODOPA ER [Suspect]
     Active Substance: CARBIDOPA\LEVODOPA
     Dosage: 900 MG/DAY
     Route: 048
  8. CARBIDOPA-LEVODOPA ER [Suspect]
     Active Substance: CARBIDOPA\LEVODOPA
     Dosage: 675 MG/DAY
     Route: 048
  9. PRAMIPEXOLE. [Suspect]
     Active Substance: PRAMIPEXOLE
     Dosage: 1.5 MG/DAY
     Route: 065
  10. SELEGILINE HYDROCHLORIDE. [Suspect]
     Active Substance: SELEGILINE HYDROCHLORIDE
     Indication: PARKINSON^S DISEASE
     Dosage: 5 MG, DAILY
     Route: 065
  11. ENTACAPONE. [Suspect]
     Active Substance: ENTACAPONE
     Indication: PARKINSONISM
     Dosage: 300 MG, DAILY
     Route: 065
  12. CARBIDOPA-LEVODOPA ER [Suspect]
     Active Substance: CARBIDOPA\LEVODOPA
     Dosage: RESUMED AT A SMALL AMOUNT
     Route: 048
  13. LEVODOPA [Concomitant]
     Active Substance: LEVODOPA
     Indication: PARKINSONISM
     Dosage: 150 MG, UNK
     Route: 042

REACTIONS (9)
  - Athetosis [None]
  - Disorientation [None]
  - Impatience [Recovered/Resolved]
  - Hyperpyrexia [None]
  - Hyperhidrosis [None]
  - Dyskinesia [Recovered/Resolved]
  - Agitation [Recovered/Resolved]
  - Gait disturbance [None]
  - Hallucination, visual [Unknown]

NARRATIVE: CASE EVENT DATE: 201209
